FAERS Safety Report 4456613-4 (Version None)
Quarter: 2004Q3

REPORT INFORMATION
  Report Type: 
  Country: None (occurrence: None)
  Receive Date: 20040921
  Receipt Date: 20040910
  Transmission Date: 20050211
  Serious: Yes (Other)
  Sender: FDA-Public Use
  Company Number: S04-USA-04731-01

PATIENT
  Age: 45 Year
  Sex: Female

DRUGS (1)
  1. LEXAPRO [Suspect]
     Indication: DEPRESSION
     Dosage: 10 MG QD PO
     Route: 048
     Dates: start: 20040501, end: 20040709

REACTIONS (5)
  - DRY GANGRENE [None]
  - INFARCTION [None]
  - NAIL DISORDER [None]
  - RAYNAUD'S PHENOMENON [None]
  - VASCULITIS [None]
